FAERS Safety Report 19999315 (Version 1)
Quarter: 2021Q4

REPORT INFORMATION
  Report Type: Report from Study
  Country: None (occurrence: US)
  Receive Date: 20211027
  Receipt Date: 20211027
  Transmission Date: 20220303
  Serious: Yes (Other)
  Sender: FDA-Public Use
  Company Number: US-ABBVIE-21K-163-4134292-00

PATIENT
  Sex: Female

DRUGS (1)
  1. HUMIRA [Suspect]
     Active Substance: ADALIMUMAB
     Indication: Rheumatoid arthritis
     Route: 058
     Dates: start: 202102

REACTIONS (12)
  - Rotator cuff syndrome [Unknown]
  - Fatigue [Unknown]
  - Urinary retention [Unknown]
  - Carpal tunnel syndrome [Unknown]
  - Urinary incontinence [Unknown]
  - Asthenia [Unknown]
  - Arthropathy [Unknown]
  - Arthralgia [Unknown]
  - Back pain [Unknown]
  - Musculoskeletal disorder [Unknown]
  - Neck pain [Unknown]
  - Furuncle [Unknown]
